FAERS Safety Report 10957666 (Version 1)
Quarter: 2015Q1

REPORT INFORMATION
  Report Type: Spontaneous
  Country: US (occurrence: None)
  Receive Date: 20150226
  Receipt Date: 20150226
  Transmission Date: 20150721
  Serious: Yes (Other)
  Sender: FDA-Public Use
  Company Number: TPA2012A02552

PATIENT
  Age: 64 Year
  Sex: Male
  Weight: 79.83 kg

DRUGS (7)
  1. JANUVIA [Concomitant]
     Active Substance: SITAGLIPTIN PHOSPHATE
  2. METFORMIN [Concomitant]
     Active Substance: METFORMIN HYDROCHLORIDE
  3. NORVASC [Concomitant]
     Active Substance: AMLODIPINE BESYLATE
  4. COREG [Concomitant]
     Active Substance: CARVEDILOL
  5. AMARYL [Concomitant]
     Active Substance: GLIMEPIRIDE
  6. ACTOS [Suspect]
     Active Substance: PIOGLITAZONE HYDROCHLORIDE
     Indication: TYPE 2 DIABETES MELLITUS
     Dates: start: 200801, end: 201111
  7. ZETIA [Concomitant]
     Active Substance: EZETIMIBE

REACTIONS (3)
  - Bladder neoplasm [None]
  - Bladder cancer [None]
  - Transitional cell carcinoma [None]

NARRATIVE: CASE EVENT DATE: 20100515
